FAERS Safety Report 25924541 (Version 1)
Quarter: 2025Q4

REPORT INFORMATION
  Report Type: Spontaneous
  Country: EU (occurrence: EU)
  Receive Date: 20251015
  Receipt Date: 20251015
  Transmission Date: 20260118
  Serious: Yes (Other)
  Sender: PFIZER
  Company Number: EU-MMM-Otsuka-EM0BYOFR

PATIENT
  Age: 29 Year
  Sex: Female

DRUGS (13)
  1. LORAZEPAM [Interacting]
     Active Substance: LORAZEPAM
     Dosage: 1-0-0-1 (WHEN NEEDED ADDITIONALLY 1 TABLET TEMESTA)
  2. ARIPIPRAZOLE [Interacting]
     Active Substance: ARIPIPRAZOLE
     Dosage: 1 DF, 1X/DAY, 1-0-0-0
  3. PANTOPRAZOLE [Interacting]
     Active Substance: PANTOPRAZOLE
     Dosage: 1 DF, 1X/DAY, 1-0-0-0
  4. FLUOXETINE HYDROCHLORIDE [Interacting]
     Active Substance: FLUOXETINE HYDROCHLORIDE
     Dosage: 3 DF, 1X/DAY, 3-0-0-0
  5. TRAZODONE [Interacting]
     Active Substance: TRAZODONE HYDROCHLORIDE
     Dosage: 2 DF, 1X/DAY, 0-0-0-2
  6. PROTHIPENDYL [Interacting]
     Active Substance: PROTHIPENDYL
     Dosage: 2 DF, 1X/DAY, 0-0-0-2
  7. ZOLPIDEM [Interacting]
     Active Substance: ZOLPIDEM TARTRATE
     Dosage: 1 DF, 1X/DAY, 0-0-0-1
  8. ZUCLOPENTHIXOL [Interacting]
     Active Substance: ZUCLOPENTHIXOL
     Dosage: 1 DF, 1X/DAY, 1-0-0-1
  9. MAGNESIUM [Interacting]
     Active Substance: MAGNESIUM
     Dosage: 1 DF, 1X/DAY, 365 MG BTL.: 0-0-0-1
  10. POLYETHYLENE GLYCOLS [Interacting]
     Active Substance: POLYETHYLENE GLYCOLS
     Dosage: 1X/DAY, 1-0-0-0
  11. LEVOMEPROMAZINE [Interacting]
     Active Substance: LEVOMEPROMAZINE
     Indication: Self-injurious ideation
     Dosage: 1 DF MAXIMAL TWICE DAILY
  12. LEVOMEPROMAZINE [Interacting]
     Active Substance: LEVOMEPROMAZINE
     Indication: Suicidal ideation
  13. VITAMINS NOS [Interacting]
     Active Substance: VITAMINS
     Dosage: 40 DROP, WEEKLY

REACTIONS (2)
  - Electrocardiogram QT prolonged [Recovered/Resolved]
  - Drug interaction [Unknown]
